FAERS Safety Report 9316699 (Version 1)
Quarter: 2013Q2

REPORT INFORMATION
  Report Type: Spontaneous
  Country: US (occurrence: None)
  Receive Date: 20130524
  Receipt Date: 20130524
  Transmission Date: 20140414
  Serious: Yes (Life-Threatening, Hospitalization)
  Sender: FDA-Public Use
  Company Number: 1716063

PATIENT
  Age: 74 Year
  Sex: Male
  Weight: 73.5 kg

DRUGS (6)
  1. PACLITAXEL [Suspect]
     Indication: LUNG ADENOCARCINOMA
     Dosage: 300 MG MILLIGRAM(S) (UNKNOWN) INTRAVENOUS (NOT OTHERWISE SPECIFIED)
     Route: 042
  2. PACLITAXEL [Suspect]
     Dosage: 100 MG MILLIGRAM(S) (UNKNOWN) INTRAVENOUS (NOT OTHERWISE SPECIFIED)
     Route: 042
  3. ZOFRAN  /00955301/) [Concomitant]
  4. BENADRYL /00000402/ [Concomitant]
  5. DEXAMETHASONE [Concomitant]
  6. RANITIDINE [Concomitant]

REACTIONS (2)
  - Flushing [None]
  - Dyspnoea [None]
